FAERS Safety Report 5393597-9 (Version None)
Quarter: 2007Q3

REPORT INFORMATION
  Report Type: 
  Country: None (occurrence: None)
  Receive Date: 20070723
  Receipt Date: 20061122
  Transmission Date: 20080115
  Serious: Yes (Hospitalization)
  Sender: FDA-Public Use
  Company Number: A0620684A

PATIENT
  Age: 56 Year
  Sex: Male

DRUGS (16)
  1. AVANDIA [Suspect]
     Dosage: 4MG TWICE PER DAY
     Route: 048
  2. INSULIN [Concomitant]
  3. HUMULIN R [Concomitant]
  4. ALLOPURINOL [Concomitant]
     Dosage: 300MG PER DAY
  5. AMIODARONE HCL [Concomitant]
     Dosage: 200MG PER DAY
  6. LIPITOR [Concomitant]
     Dosage: 10MG PER DAY
  7. VASOTEC [Concomitant]
     Dosage: 10MG TWICE PER DAY
  8. DIGOXIN [Concomitant]
     Dosage: .25MG PER DAY
  9. COUMADIN [Concomitant]
     Dosage: 4MG PER DAY
  10. METOLAZONE [Concomitant]
     Dosage: 5MG PER DAY
  11. LASIX [Concomitant]
     Dosage: 40MG TWICE PER DAY
  12. COREG [Concomitant]
     Dosage: 12.5MG TWICE PER DAY
  13. QUININE SULFATE [Concomitant]
     Dosage: 260MG TWICE PER DAY
  14. NITROGLYCERIN [Concomitant]
     Dosage: .4U AS REQUIRED
     Route: 060
  15. TAGAMET [Concomitant]
     Dosage: 400MG PER DAY
  16. GLIPIZIDE [Concomitant]

REACTIONS (2)
  - BLOOD GLUCOSE INCREASED [None]
  - INSULIN RESISTANCE [None]
